FAERS Safety Report 8187016-7 (Version None)
Quarter: 2012Q1

REPORT INFORMATION
  Report Type: 
  Country: None (occurrence: None)
  Receive Date: 20120306
  Receipt Date: 20120229
  Transmission Date: 20120608
  Serious: Yes (Hospitalization)
  Sender: FDA-Public Use
  Company Number: US-PFIZER INC-2012055670

PATIENT
  Sex: Female

DRUGS (1)
  1. REVATIO [Suspect]
     Indication: HYPERTENSION
     Dosage: 20 MG, 3X/DAY
     Dates: start: 20090114

REACTIONS (4)
  - GASTRIC DISORDER [None]
  - MALAISE [None]
  - FLATULENCE [None]
  - ABDOMINAL PAIN UPPER [None]
